FAERS Safety Report 5053496-9 (Version None)
Quarter: 2006Q3

REPORT INFORMATION
  Report Type: 
  Country: None (occurrence: None)
  Receive Date: 20060718
  Receipt Date: 20060510
  Transmission Date: 20061208
  Serious: Yes (Life-Threatening, Hospitalization)
  Sender: FDA-Public Use
  Company Number: DE-SANOFI-SYNTHELABO-A04200600508

PATIENT
  Sex: Male
  Weight: 90 kg

DRUGS (4)
  1. ALCOHOL [Suspect]
     Indication: BIPOLAR I DISORDER
     Dosage: 1 BOTTLE OF SCHNAPPS
     Route: 048
     Dates: start: 20060316, end: 20060316
  2. SEROQUEL [Suspect]
     Indication: BIPOLAR I DISORDER
     Route: 048
     Dates: start: 20060316, end: 20060316
  3. TAVOR [Suspect]
     Indication: BIPOLAR I DISORDER
     Route: 048
     Dates: start: 20060316, end: 20060316
  4. STILNOX [Suspect]
     Indication: BIPOLAR I DISORDER
     Route: 048
     Dates: start: 20060316, end: 20060316

REACTIONS (5)
  - GASTROINTESTINAL HAEMORRHAGE [None]
  - INTENTIONAL OVERDOSE [None]
  - OESOPHAGITIS ULCERATIVE [None]
  - RENAL FAILURE ACUTE [None]
  - TOXIC EPIDERMAL NECROLYSIS [None]
